FAERS Safety Report 5339444-2 (Version None)
Quarter: 2007Q2

REPORT INFORMATION
  Report Type: 
  Country: None (occurrence: None)
  Receive Date: 20070404
  Receipt Date: 20060624
  Transmission Date: 20071010
  Serious: Yes (Other)
  Sender: FDA-Public Use
  Company Number: 2006063884

PATIENT
  Age: 30 Year
  Sex: Male
  Weight: 99.7913 kg

DRUGS (7)
  1. GEODON [Suspect]
     Indication: SCHIZOAFFECTIVE DISORDER
     Dosage: ORAL
     Route: 048
  2. SEROQUEL [Suspect]
     Indication: DRUG USE FOR UNKNOWN INDICATION
  3. TRICOR [Concomitant]
  4. DEPAKOTE [Concomitant]
  5. TRAZODONE HCL [Concomitant]
  6. TOPAMAX [Concomitant]
  7. ALL OTHER THERAPEUTIC PRODUCTS (ALL OTHER THERAPEUTIC PRODUCTS) [Concomitant]

REACTIONS (7)
  - ENURESIS [None]
  - FEELING ABNORMAL [None]
  - HYPERSOMNIA [None]
  - HYPERTONIC BLADDER [None]
  - INSOMNIA [None]
  - PSYCHOTIC DISORDER [None]
  - UNEVALUABLE EVENT [None]
